FAERS Safety Report 12841662 (Version 2)
Quarter: 2016Q4

REPORT INFORMATION
  Report Type: Spontaneous
  Country: AU (occurrence: AU)
  Receive Date: 20161012
  Receipt Date: 20161216
  Transmission Date: 20170207
  Serious: Yes (Death, Other)
  Sender: FDA-Public Use
  Company Number: AU-BRISTOL-MYERS SQUIBB COMPANY-BMS-2016-083131

PATIENT
  Age: 56 Year
  Sex: Male
  Weight: 64 kg

DRUGS (1)
  1. OPDIVO [Suspect]
     Active Substance: NIVOLUMAB
     Indication: NON-SMALL CELL LUNG CANCER
     Dosage: 192 MG, UNK
     Route: 065
     Dates: start: 20160830

REACTIONS (1)
  - Malignant neoplasm progression [Fatal]
